FAERS Safety Report 14510822 (Version 1)
Quarter: 2018Q1

REPORT INFORMATION
  Report Type: Report from Study
  Country: BR (occurrence: BR)
  Receive Date: 20180209
  Receipt Date: 20180209
  Transmission Date: 20180509
  Serious: Yes (Other)
  Sender: FDA-Public Use
  Company Number: BR-EMD SERONO-E2B_90020056

PATIENT
  Age: 12 Year
  Sex: Male

DRUGS (1)
  1. SAIZEN [Suspect]
     Active Substance: SOMATROPIN
     Indication: WEIGHT INCREASED
     Dosage: EASYPOD 29G NEEDLE
     Route: 058
     Dates: start: 20170524

REACTIONS (5)
  - Epiphyses premature fusion [Unknown]
  - Paralysis [Unknown]
  - Gait disturbance [Unknown]
  - Off label use [Unknown]
  - Tendinous contracture [Unknown]

NARRATIVE: CASE EVENT DATE: 20170524
